FAERS Safety Report 23602311 (Version 1)
Quarter: 2024Q1

REPORT INFORMATION
  Report Type: Spontaneous
  Country: US (occurrence: US)
  Receive Date: 20240306
  Receipt Date: 20240306
  Transmission Date: 20240409
  Serious: No
  Sender: FDA-Public Use
  Company Number: US-SANDOZ-SDZ2024US023836

PATIENT
  Sex: Male

DRUGS (1)
  1. OMNITROPE [Suspect]
     Active Substance: SOMATROPIN
     Indication: Product used for unknown indication
     Dosage: 10 MG 2 DOSE EVERY N/A N/A
     Route: 058
     Dates: start: 20210301, end: 20240226

REACTIONS (2)
  - Product use issue [Not Recovered/Not Resolved]
  - Malaise [Unknown]
